FAERS Safety Report 13838646 (Version 14)
Quarter: 2018Q4

REPORT INFORMATION
  Report Type: Report from Study
  Country: AU (occurrence: AU)
  Receive Date: 20170807
  Receipt Date: 20181001
  Transmission Date: 20190204
  Serious: Yes (Hospitalization, Other)
  Sender: FDA-Public Use
  Company Number: PHHY2017AU114715

PATIENT
  Age: 44 Year
  Sex: Female
  Weight: 102 kg

DRUGS (21)
  1. VESICARE [Concomitant]
     Active Substance: SOLIFENACIN SUCCINATE
     Dosage: 25 MG, QD
     Route: 048
     Dates: start: 2017
  2. GILENYA [Suspect]
     Active Substance: FINGOLIMOD HYDROCHLORIDE
     Indication: RELAPSING-REMITTING MULTIPLE SCLEROSIS
     Dosage: UNK
     Route: 048
     Dates: start: 20120529
  3. GILENYA [Suspect]
     Active Substance: FINGOLIMOD HYDROCHLORIDE
     Dosage: UNK, QW5
     Route: 048
  4. GILENYA [Suspect]
     Active Substance: FINGOLIMOD HYDROCHLORIDE
     Dosage: UNK UNK, QOD
     Route: 048
     Dates: start: 20170412
  5. FAMCICLOVIR. [Suspect]
     Active Substance: FAMCICLOVIR
     Indication: PROPHYLAXIS
     Dosage: 500 MG, BID
     Route: 048
  6. VITAMIN D [Concomitant]
     Active Substance: CHOLECALCIFEROL
     Indication: MULTIPLE SCLEROSIS
     Dosage: 10000 IU, UNK
     Route: 065
     Dates: start: 2012
  7. VITAMIN B12 [Concomitant]
     Active Substance: CYANOCOBALAMIN
     Indication: PRODUCT USED FOR UNKNOWN INDICATION
     Dosage: 2 MG, QD
     Route: 048
     Dates: start: 2012
  8. VESICARE [Concomitant]
     Active Substance: SOLIFENACIN SUCCINATE
     Indication: NEUROGENIC BLADDER
     Dosage: 5 MG, QD
     Route: 048
     Dates: start: 2012
  9. PANADOL [Concomitant]
     Active Substance: ACETAMINOPHEN
     Indication: GASTRITIS
     Dosage: 2 DF, PRN
     Route: 048
     Dates: start: 2012
  10. BETMIGA [Suspect]
     Active Substance: MIRABEGRON
     Indication: URINARY INCONTINENCE
     Dosage: 50 MG, UNK
     Route: 065
  11. VITAMIIN C [Concomitant]
     Active Substance: ASCORBIC ACID
     Indication: PRODUCT USED FOR UNKNOWN INDICATION
     Route: 065
  12. GILENYA [Suspect]
     Active Substance: FINGOLIMOD HYDROCHLORIDE
     Dosage: UNK UNK, QOD
     Route: 065
     Dates: start: 2015
  13. GILENYA [Suspect]
     Active Substance: FINGOLIMOD HYDROCHLORIDE
     Dosage: UNK (INTERVAL BETWEEN 2ND, 3RD, 4TH OR 5TH DAY)
     Route: 065
  14. GILENYA [Suspect]
     Active Substance: FINGOLIMOD HYDROCHLORIDE
     Dosage: UNK (EVERY THIRD DAY)
     Route: 065
  15. VITAMIN B12 [Concomitant]
     Active Substance: CYANOCOBALAMIN
     Dosage: 200 MG, UNK
     Route: 065
  16. PANTOPRAZOLE [Concomitant]
     Active Substance: PANTOPRAZOLE
     Indication: GASTRITIS
     Dosage: 20 MG, PRN
     Route: 048
     Dates: start: 2012
  17. HERCEPTIN [Concomitant]
     Active Substance: TRASTUZUMAB
     Indication: PRODUCT USED FOR UNKNOWN INDICATION
     Route: 065
  18. SALBUTAMOL [Concomitant]
     Active Substance: ALBUTEROL
     Indication: ASTHMA
     Dosage: 2 DF, PRN
     Route: 055
  19. TAMOXIFEN [Suspect]
     Active Substance: TAMOXIFEN
     Indication: BREAST CANCER
     Dosage: 20 MG, QD
     Route: 048
     Dates: start: 201606
  20. BETMIGA [Suspect]
     Active Substance: MIRABEGRON
     Dosage: 25 MG, UNK
     Route: 065
  21. SYMBICORT [Concomitant]
     Active Substance: BUDESONIDE\FORMOTEROL FUMARATE DIHYDRATE
     Indication: ASTHMA
     Dosage: 2 DF, UNK
     Route: 055

REACTIONS (56)
  - Fall [Unknown]
  - Viral rash [Recovered/Resolved]
  - Intracranial pressure increased [Not Recovered/Not Resolved]
  - Multiple sclerosis relapse [Not Recovered/Not Resolved]
  - Peroneal nerve palsy [Not Recovered/Not Resolved]
  - Poor quality sleep [Not Recovered/Not Resolved]
  - Pollakiuria [Not Recovered/Not Resolved]
  - Oropharyngeal pain [Not Recovered/Not Resolved]
  - Body temperature increased [Not Recovered/Not Resolved]
  - Breast cancer [Not Recovered/Not Resolved]
  - Balance disorder [Not Recovered/Not Resolved]
  - Cellulitis [Recovered/Resolved]
  - Uhthoff^s phenomenon [Not Recovered/Not Resolved]
  - Anxiety [Not Recovered/Not Resolved]
  - Rhinorrhoea [Not Recovered/Not Resolved]
  - C-reactive protein increased [Unknown]
  - Erythema [Recovering/Resolving]
  - Depressed mood [Recovering/Resolving]
  - Fatigue [Not Recovered/Not Resolved]
  - Gait disturbance [Not Recovered/Not Resolved]
  - Feeling abnormal [Unknown]
  - Thirst [Unknown]
  - Pain [Not Recovered/Not Resolved]
  - Urinary incontinence [Not Recovered/Not Resolved]
  - Hunger [Unknown]
  - Viral infection [Recovered/Resolved]
  - Neutrophil count decreased [Unknown]
  - Leukopenia [Not Recovered/Not Resolved]
  - Mobility decreased [Not Recovered/Not Resolved]
  - Cognitive disorder [Not Recovered/Not Resolved]
  - Weight increased [Not Recovered/Not Resolved]
  - Concomitant disease aggravated [Not Recovered/Not Resolved]
  - Weight decreased [Not Recovered/Not Resolved]
  - Frustration tolerance decreased [Unknown]
  - Infection [Not Recovered/Not Resolved]
  - Bacterial disease carrier [Unknown]
  - Prescribed underdose [Unknown]
  - Febrile neutropenia [Recovered/Resolved]
  - Pancytopenia [Unknown]
  - Myelodysplastic syndrome [Recovered/Resolved]
  - Immune thrombocytopenic purpura [Not Recovered/Not Resolved]
  - Diplopia [Not Recovered/Not Resolved]
  - Temperature intolerance [Not Recovered/Not Resolved]
  - Herpes zoster [Recovered/Resolved]
  - Asthenia [Unknown]
  - Contusion [Unknown]
  - Haematoma [Unknown]
  - Headache [Recovered/Resolved]
  - Onychomycosis [Not Recovered/Not Resolved]
  - Lymphopenia [Not Recovered/Not Resolved]
  - Cellulitis [Recovering/Resolving]
  - Rib fracture [Not Recovered/Not Resolved]
  - Bone density decreased [Not Recovered/Not Resolved]
  - Hot flush [Not Recovered/Not Resolved]
  - Skin ulcer [Unknown]
  - Osteopenia [Not Recovered/Not Resolved]

NARRATIVE: CASE EVENT DATE: 201208
